FAERS Safety Report 4748441-7 (Version None)
Quarter: 2005Q3

REPORT INFORMATION
  Report Type: 
  Country: None (occurrence: None)
  Receive Date: 20050818
  Receipt Date: 20050805
  Transmission Date: 20060218
  Serious: Yes (Other)
  Sender: FDA-Public Use
  Company Number: 2005088717

PATIENT
  Sex: Male

DRUGS (1)
  1. NITROSTAT [Suspect]
     Indication: ILL-DEFINED DISORDER
     Dates: start: 20050501

REACTIONS (3)
  - AGEUSIA [None]
  - BURNING SENSATION [None]
  - PARAESTHESIA [None]
